FAERS Safety Report 11685994 (Version 3)
Quarter: 2015Q4

REPORT INFORMATION
  Report Type: Spontaneous
  Country: JP (occurrence: JP)
  Receive Date: 20151030
  Receipt Date: 20151202
  Transmission Date: 20160304
  Serious: Yes (Life-Threatening, Hospitalization, Disabling, Other)
  Sender: FDA-Public Use
  Company Number: JP-VIIV HEALTHCARE LIMITED-JP2015JPN152730

PATIENT
  Age: 52 Year
  Sex: Male

DRUGS (14)
  1. RETROVIR [Suspect]
     Active Substance: ZIDOVUDINE
     Dosage: 2 DF, BID
     Route: 048
     Dates: start: 200603, end: 201504
  2. JZOLOFT [Concomitant]
     Active Substance: SERTRALINE HYDROCHLORIDE
     Indication: DEPRESSION
     Dosage: 4 DF, QD
     Dates: start: 201112
  3. SEROQUEL [Suspect]
     Active Substance: QUETIAPINE FUMARATE
     Indication: DEPRESSION
     Dosage: 4 DF, QD
     Route: 048
     Dates: start: 201301, end: 201502
  4. LOPEMIN [Concomitant]
     Active Substance: LOPERAMIDE HYDROCHLORIDE
  5. AMOBAN [Concomitant]
     Active Substance: ZOPICLONE
  6. REFLEX [Concomitant]
     Active Substance: MIRTAZAPINE
  7. RETROVIR [Suspect]
     Active Substance: ZIDOVUDINE
     Indication: HIV INFECTION
     Dosage: 2 DF, BID
     Route: 048
     Dates: start: 199609, end: 199910
  8. SELBEX [Concomitant]
     Active Substance: TEPRENONE
  9. ISENTRESS [Concomitant]
     Active Substance: RALTEGRAVIR POTASSIUM
     Indication: HIV INFECTION
     Dosage: 1 DF, BID
     Route: 048
     Dates: start: 201205
  10. TRUVADA [Concomitant]
     Active Substance: EMTRICITABINE\TENOFOVIR DISOPROXIL FUMARATE
     Indication: HIV INFECTION
     Dosage: 1 DF, QD
     Route: 048
     Dates: start: 200603
  11. BENZALIN (JAPAN) [Concomitant]
  12. CONSTAN [Concomitant]
     Active Substance: ALPRAZOLAM
  13. BIOFERMIN R (JAPAN) [Concomitant]
  14. IRRIBOW [Concomitant]
     Active Substance: RAMOSETRON HYDROCHLORIDE

REACTIONS (11)
  - Muscular weakness [Recovered/Resolved with Sequelae]
  - Incontinence [Recovered/Resolved with Sequelae]
  - Sensory disturbance [Recovered/Resolved with Sequelae]
  - Metabolic disorder [Unknown]
  - Rhabdomyolysis [Recovered/Resolved]
  - Autonomic nervous system imbalance [Recovered/Resolved with Sequelae]
  - Neuropathy peripheral [Recovered/Resolved with Sequelae]
  - Nervous system disorder [Not Recovered/Not Resolved]
  - Eyelid ptosis [Recovered/Resolved with Sequelae]
  - Myalgia [Unknown]
  - Opportunistic infection [Unknown]

NARRATIVE: CASE EVENT DATE: 20150227
